FAERS Safety Report 5930477-1 (Version None)
Quarter: 2008Q4

REPORT INFORMATION
  Report Type: 
  Country: None (occurrence: None)
  Receive Date: 20081023
  Receipt Date: 20060420
  Transmission Date: 20090506
  Serious: Yes (Other)
  Sender: FDA-Public Use
  Company Number: 2006AL001972

PATIENT
  Age: 16 Year
  Sex: Female

DRUGS (5)
  1. MIRTAZAPINE [Suspect]
     Dosage: 30 TABS; X1; PO
     Route: 048
     Dates: start: 20060312, end: 20060312
  2. TRAMADOL HCL [Suspect]
     Dosage: 5000 MG; X1; PO
     Route: 048
     Dates: start: 20060312, end: 20060312
  3. DICLOFENAC SODIUM [Suspect]
     Dosage: 3000 MG; X1; PO
     Route: 048
     Dates: start: 20060312, end: 20060312
  4. ZOLOFT [Concomitant]
  5. OMEPRAZOLE [Concomitant]

REACTIONS (3)
  - EPISTAXIS [None]
  - GASTRIC HAEMORRHAGE [None]
  - OVERDOSE [None]
